FAERS Safety Report 7769178-6 (Version None)
Quarter: 2011Q3

REPORT INFORMATION
  Report Type: 
  Country: None (occurrence: None)
  Receive Date: 20110922
  Receipt Date: 20110920
  Transmission Date: 20111222
  Serious: Yes (Death, Other)
  Sender: FDA-Public Use
  Company Number: CA-ROCHE-756108

PATIENT
  Sex: Male
  Weight: 94.8 kg

DRUGS (11)
  1. FOLIC ACID [Concomitant]
  2. OXYCONTIN [Concomitant]
  3. ELAVIL [Concomitant]
  4. IBUPROFEN [Concomitant]
  5. BEVACIZUMAB [Suspect]
     Indication: GLIOBLASTOMA MULTIFORME
     Route: 042
     Dates: start: 20101215
  6. DILANTIN [Concomitant]
  7. DOXYCYCLINE HYCLATE [Concomitant]
     Dates: start: 20101130
  8. OMEPRAZOLE [Concomitant]
  9. BEVACIZUMAB [Suspect]
     Route: 042
     Dates: end: 20110908
  10. DECADRON [Concomitant]
  11. OXYCODONE HCL [Concomitant]

REACTIONS (4)
  - ORAL FUNGAL INFECTION [None]
  - NEOPLASM MALIGNANT [None]
  - STOMATITIS [None]
  - DEATH [None]
